FAERS Safety Report 9291974 (Version 1)
Quarter: 2013Q2

REPORT INFORMATION
  Report Type: Spontaneous
  Country: US (occurrence: US)
  Receive Date: 20130516
  Receipt Date: 20130516
  Transmission Date: 20140414
  Serious: No
  Sender: FDA-Public Use
  Company Number: US-PFIZER INC-2013150254

PATIENT
  Age: 47 Year
  Sex: Female
  Weight: 90.7 kg

DRUGS (2)
  1. LYRICA [Suspect]
     Indication: PAIN
     Dosage: 200 MG, 3X/DAY
     Route: 048
     Dates: start: 20130115, end: 20130430
  2. METHADONE [Concomitant]
     Dosage: UNK

REACTIONS (10)
  - Arthralgia [Unknown]
  - Weight increased [Unknown]
  - Gait disturbance [Unknown]
  - Breast tenderness [Unknown]
  - Anxiety [Unknown]
  - Blood triglycerides increased [Unknown]
  - High density lipoprotein decreased [Unknown]
  - Joint swelling [Unknown]
  - Arthralgia [Unknown]
  - Depression [Unknown]
